FAERS Safety Report 15487690 (Version 2)
Quarter: 2018Q4

REPORT INFORMATION
  Report Type: Spontaneous
  Country: US (occurrence: US)
  Receive Date: 20181011
  Receipt Date: 20181108
  Transmission Date: 20190205
  Serious: No
  Sender: FDA-Public Use
  Company Number: US-BAUSCH-BL-2018-026635

PATIENT
  Age: 36 Year
  Sex: Female
  Weight: 61.29 kg

DRUGS (4)
  1. VALACYCLOVIR [Concomitant]
     Active Substance: VALACYCLOVIR HYDROCHLORIDE
     Indication: PRODUCT USED FOR UNKNOWN INDICATION
     Route: 048
  2. LOTEMAX [Suspect]
     Active Substance: LOTEPREDNOL ETABONATE
     Indication: HERPES OPHTHALMIC
     Dosage: 1 DROP IN THE LEFT EYE 1 TO 2 TIMES DAILY?USING THE PRODUCT SINCE BEFORE 2011
     Route: 047
     Dates: end: 20180814
  3. VALACYCLOVIR [Concomitant]
     Active Substance: VALACYCLOVIR HYDROCHLORIDE
     Route: 048
     Dates: start: 201808
  4. LOTEMAX [Suspect]
     Active Substance: LOTEPREDNOL ETABONATE
     Dosage: 1 DROP IN THE LEFT EYE 1 TO 2 TIMES DAILY: NEW BOTTLE
     Route: 047
     Dates: start: 20180921

REACTIONS (5)
  - Product quality issue [Recovered/Resolved]
  - Drug ineffective [Recovered/Resolved]
  - Corneal scar [Recovered/Resolved]
  - Photophobia [Recovered/Resolved]
  - Asthenopia [Recovered/Resolved]

NARRATIVE: CASE EVENT DATE: 2018
